FAERS Safety Report 14685888 (Version 1)
Quarter: 2018Q1

REPORT INFORMATION
  Report Type: Spontaneous
  Country: US (occurrence: US)
  Receive Date: 20180327
  Receipt Date: 20180327
  Transmission Date: 20180509
  Serious: Yes (Life-Threatening, Hospitalization)
  Sender: FDA-Public Use
  Company Number: US-TEVA-2018-US-874809

PATIENT
  Age: 68 Year
  Sex: Male

DRUGS (1)
  1. PANTOPRAZOLE [Suspect]
     Active Substance: PANTOPRAZOLE
     Dosage: TWICE DAILY
     Route: 065

REACTIONS (2)
  - Angioedema [Unknown]
  - Drug hypersensitivity [Unknown]
